FAERS Safety Report 6105357-1 (Version None)
Quarter: 2009Q1

REPORT INFORMATION
  Report Type: 
  Country: None (occurrence: None)
  Receive Date: 20090306
  Receipt Date: 20090303
  Transmission Date: 20090719
  Serious: Yes (Other)
  Sender: FDA-Public Use
  Company Number: JP-PFIZER INC-2009174974

PATIENT

DRUGS (4)
  1. CARDENALIN [Suspect]
     Dosage: 1 MG, 2X/DAY
     Route: 048
     Dates: start: 20080201
  2. DIGOSIN [Suspect]
     Dosage: 0.125 MG, 1X/DAY
     Route: 048
  3. ADALAT CC [Suspect]
     Dosage: UNK
     Route: 048
     Dates: end: 20090223
  4. INSULIN [Concomitant]

REACTIONS (1)
  - FAECES DISCOLOURED [None]
